FAERS Safety Report 5615394-9 (Version None)
Quarter: 2008Q1

REPORT INFORMATION
  Report Type: 
  Country: None (occurrence: None)
  Receive Date: 20080206
  Receipt Date: 20080123
  Transmission Date: 20080703
  Serious: Yes (Hospitalization, Other)
  Sender: FDA-Public Use
  Company Number: GB-AMGEN-US263038

PATIENT
  Age: 17 Year
  Sex: Male
  Weight: 45 kg

DRUGS (2)
  1. ENBREL [Suspect]
     Indication: DRUG USE FOR UNKNOWN INDICATION
     Route: 058
     Dates: start: 20040614
  2. METHOTREXATE [Concomitant]
     Route: 058
     Dates: start: 20060501, end: 20060601

REACTIONS (1)
  - SEPTIC ARTHRITIS STAPHYLOCOCCAL [None]
